FAERS Safety Report 21068699 (Version 1)
Quarter: 2022Q3

REPORT INFORMATION
  Report Type: Spontaneous
  Country: US (occurrence: US)
  Receive Date: 20220712
  Receipt Date: 20220712
  Transmission Date: 20221027
  Serious: No
  Sender: FDA-Public Use
  Company Number: US-MAYNE PHARMA-2022MYN000012

PATIENT
  Sex: Female

DRUGS (1)
  1. ESTAZOLAM [Suspect]
     Active Substance: ESTAZOLAM
     Indication: Sleep disorder
     Dosage: 2 MG, QD, ORANGE OVAL PILL 93;130
     Route: 048

REACTIONS (1)
  - Dry mouth [Unknown]
